FAERS Safety Report 14359384 (Version 1)
Quarter: 2018Q1

REPORT INFORMATION
  Report Type: Spontaneous
  Country: US (occurrence: US)
  Receive Date: 20180105
  Receipt Date: 20180105
  Transmission Date: 20180509
  Serious: No
  Sender: FDA-Public Use
  Company Number: US-SA-2017SA171787

PATIENT
  Age: 62 Year
  Sex: Female

DRUGS (2)
  1. ZANTAC [Suspect]
     Active Substance: RANITIDINE HYDROCHLORIDE
     Route: 065
  2. ZANTAC [Suspect]
     Active Substance: RANITIDINE HYDROCHLORIDE
     Route: 065
     Dates: start: 20170828, end: 20170908

REACTIONS (10)
  - Dyspepsia [Unknown]
  - Diarrhoea [Unknown]
  - Migraine [Unknown]
  - Malaise [Unknown]
  - Hypertension [Unknown]
  - Blood potassium decreased [Recovered/Resolved]
  - Dyspnoea [Recovered/Resolved]
  - Dehydration [Recovered/Resolved]
  - Alopecia [Unknown]
  - Musculoskeletal pain [Unknown]
